FAERS Safety Report 4532815-3 (Version None)
Quarter: 2004Q4

REPORT INFORMATION
  Report Type: 
  Country: None (occurrence: None)
  Receive Date: 20041220
  Receipt Date: 20041123
  Transmission Date: 20050328
  Serious: Yes (Death)
  Sender: FDA-Public Use
  Company Number: 2004AP000841

PATIENT
  Age: 84 Year
  Sex: Female

DRUGS (6)
  1. LACTULOSE [Suspect]
     Indication: HEPATIC ENCEPHALOPATHY
     Dosage: 2 TBSP ; 3 TIMES A DAY; ORAL
     Route: 048
     Dates: start: 20041027, end: 20041101
  2. LANOXIN [Concomitant]
  3. ALDACTONE [Concomitant]
  4. PROPRANOLOL [Concomitant]
  5. SYNTHROID [Concomitant]
  6. PRILOSEC [Concomitant]

REACTIONS (2)
  - DRUG INEFFECTIVE [None]
  - PHARMACEUTICAL PRODUCT COMPLAINT [None]
